APPROVED DRUG PRODUCT: NITROSTAT
Active Ingredient: NITROGLYCERIN
Strength: 0.8MG/ML
Dosage Form/Route: INJECTABLE;INJECTION
Application: N018588 | Product #001
Applicant: PARKE DAVIS DIV WARNER LAMBERT CO
Approved: Approved Prior to Jan 1, 1982 | RLD: No | RS: No | Type: DISCN